FAERS Safety Report 23262526 (Version 1)
Quarter: 2023Q4

REPORT INFORMATION
  Report Type: Spontaneous
  Country: US (occurrence: US)
  Receive Date: 20231205
  Receipt Date: 20231205
  Transmission Date: 20240109
  Serious: No
  Sender: FDA-Public Use
  Company Number: US-PFIZER INC-PV202300026460

PATIENT
  Age: 57 Year
  Sex: Female

DRUGS (1)
  1. INLYTA [Suspect]
     Active Substance: AXITINIB
     Indication: Thyroid cancer
     Dosage: 5 MG, 2X/DAY

REACTIONS (3)
  - Neoplasm progression [Unknown]
  - Diarrhoea [Recovering/Resolving]
  - Off label use [Unknown]
